FAERS Safety Report 19116058 (Version 1)
Quarter: 2021Q2

REPORT INFORMATION
  Report Type: Spontaneous
  Country: JP (occurrence: JP)
  Receive Date: 20210409
  Receipt Date: 20210409
  Transmission Date: 20210717
  Serious: Yes (Hospitalization, Other)
  Sender: FDA-Public Use
  Company Number: JP-GLAXOSMITHKLINE-JP2021GSK072368

PATIENT
  Age: 35 Year
  Sex: Male

DRUGS (10)
  1. CARVEDILOL. [Suspect]
     Active Substance: CARVEDILOL
     Indication: SUPRAVENTRICULAR TACHYCARDIA
     Dosage: 1.25 MG, QD
  2. TOLVAPTAN [Suspect]
     Active Substance: TOLVAPTAN
     Indication: CARDIAC FAILURE ACUTE
     Dosage: 3.75 MG/DAY
  3. BISOPROLOL [Suspect]
     Active Substance: BISOPROLOL
     Dosage: 3.125 MG, QD
  4. BISOPROLOL [Suspect]
     Active Substance: BISOPROLOL
     Indication: SUPRAVENTRICULAR TACHYCARDIA
     Dosage: 1.875 MG, QD
  5. BISOPROLOL [Suspect]
     Active Substance: BISOPROLOL
     Dosage: 5 MG, QD
  6. DOBUTAMINE [Suspect]
     Active Substance: DOBUTAMINE HYDROCHLORIDE
     Indication: SUPRAVENTRICULAR TACHYCARDIA
     Dosage: 3 UG/KG/MIN
  7. MILRINONE [Suspect]
     Active Substance: MILRINONE
     Indication: SUPRAVENTRICULAR TACHYCARDIA
     Dosage: 0.13 UG/KG/MIN
  8. LEVOTHYROXINE SODIUM HYDRATE [Concomitant]
     Active Substance: LEVOTHYROXINE SODIUM
     Indication: BASEDOW^S DISEASE
     Dosage: 100 UG, QD
  9. THIAMAZOLE [Concomitant]
     Active Substance: METHIMAZOLE
     Indication: BASEDOW^S DISEASE
     Dosage: 15 MG, QD
  10. FUROSEMIDE. [Suspect]
     Active Substance: FUROSEMIDE
     Indication: SUPRAVENTRICULAR TACHYCARDIA
     Dosage: 40 MG, QD

REACTIONS (7)
  - Supraventricular tachycardia [Recovered/Resolved]
  - Cardiac index decreased [Recovered/Resolved]
  - Cardiac failure [Recovered/Resolved]
  - Supraventricular extrasystoles [Recovered/Resolved]
  - Drug ineffective [Unknown]
  - Arrhythmia [Recovered/Resolved]
  - Heart rate increased [Recovered/Resolved]
